FAERS Safety Report 7682886-0 (Version None)
Quarter: 2011Q3

REPORT INFORMATION
  Report Type: 
  Country: None (occurrence: None)
  Receive Date: 20110815
  Receipt Date: 20110809
  Transmission Date: 20111222
  Serious: Yes (Hospitalization)
  Sender: FDA-Public Use
  Company Number: US-ROCHE-792769

PATIENT
  Sex: Female

DRUGS (3)
  1. PEGINTERFERON ALFA-2A [Suspect]
     Route: 065
     Dates: start: 20110603
  2. RIBAVIRIN [Suspect]
     Route: 065
     Dates: start: 20110603
  3. ENBREL [Concomitant]
     Indication: PSORIASIS

REACTIONS (8)
  - ANAEMIA [None]
  - PSORIASIS [None]
  - BREAST CYST [None]
  - JOINT EFFUSION [None]
  - OEDEMA PERIPHERAL [None]
  - EMOTIONAL DISTRESS [None]
  - PYREXIA [None]
  - DEPRESSION [None]
